FAERS Safety Report 17103545 (Version 1)
Quarter: 2019Q4

REPORT INFORMATION
  Report Type: Spontaneous
  Country: US (occurrence: US)
  Receive Date: 20191202
  Receipt Date: 20191202
  Transmission Date: 20200122
  Serious: No
  Sender: FDA-Public Use
  Company Number: None

PATIENT
  Age: 84 Year
  Sex: Male
  Weight: 80.55 kg

DRUGS (8)
  1. LOSARTAN. [Concomitant]
     Active Substance: LOSARTAN
  2. DONEPEZIL. [Suspect]
     Active Substance: DONEPEZIL
     Indication: AMNESIA
     Dosage: ?          QUANTITY:1 TABLET(S);?
     Route: 048
  3. ALLOPURINOL. [Concomitant]
     Active Substance: ALLOPURINOL
  4. HYDROCHLOROTHIAZIDE. [Concomitant]
     Active Substance: HYDROCHLOROTHIAZIDE
  5. LORAZEPAM. [Concomitant]
     Active Substance: LORAZEPAM
  6. PRAVASTATIN. [Concomitant]
     Active Substance: PRAVASTATIN
  7. VITAMIN B12 [Concomitant]
     Active Substance: CYANOCOBALAMIN
  8. VITAMIN C [Concomitant]
     Active Substance: ASCORBIC ACID

REACTIONS (4)
  - Pyrexia [None]
  - Product dose omission [None]
  - Hallucination [None]
  - Psychotic disorder [None]

NARRATIVE: CASE EVENT DATE: 20191128
